FAERS Safety Report 15366637 (Version 1)
Quarter: 2018Q3

REPORT INFORMATION
  Report Type: Spontaneous
  Country: US (occurrence: US)
  Receive Date: 20180910
  Receipt Date: 20180910
  Transmission Date: 20181010
  Serious: No
  Sender: FDA-Public Use
  Company Number: US-GLAXOSMITHKLINE-US2018GSK161999

PATIENT

DRUGS (1)
  1. BECONASE AQ [Suspect]
     Active Substance: BECLOMETHASONE DIPROPIONATE MONOHYDRATE
     Indication: NASAL CONGESTION
     Dosage: UNK

REACTIONS (4)
  - Drug ineffective [Unknown]
  - Nasal congestion [Unknown]
  - Condition aggravated [Unknown]
  - Reaction to preservatives [Unknown]
